FAERS Safety Report 16170357 (Version 1)
Quarter: 2019Q2

REPORT INFORMATION
  Report Type: Spontaneous
  Country: DE (occurrence: DE)
  Receive Date: 20190408
  Receipt Date: 20190408
  Transmission Date: 20190711
  Serious: Yes (Other)
  Sender: FDA-Public Use
  Company Number: DE-TEVA-2019-DE-1034328

PATIENT
  Age: 51 Year
  Sex: Female

DRUGS (1)
  1. CISPLATIN TEVA 1 MG/ML KONZENTRAT ZUR HERSTELLUNG EINER INFUSIONSLOESU [Suspect]
     Active Substance: CISPLATIN
     Indication: NEOPLASM MALIGNANT
     Dosage: FOR 5 DAYS (20MG/ SQUARE METER), ONE CYCLE
     Dates: start: 20190318, end: 20190323

REACTIONS (1)
  - Hepatitis [Unknown]

NARRATIVE: CASE EVENT DATE: 20190327
